FAERS Safety Report 6807866-6 (Version None)
Quarter: 2010Q2

REPORT INFORMATION
  Report Type: 
  Country: None (occurrence: None)
  Receive Date: 20100629
  Receipt Date: 20090127
  Transmission Date: 20101027
  Serious: No
  Sender: FDA-Public Use
  Company Number: US-PFIZER INC-2008154599

PATIENT
  Sex: Male
  Weight: 116 kg

DRUGS (7)
  1. REVATIO [Suspect]
     Indication: PULMONARY HYPERTENSION
     Dates: start: 20080101
  2. OXYGEN [Concomitant]
     Dosage: UNK
  3. SPIRIVA [Concomitant]
     Dosage: UNK
  4. PREDNISONE [Concomitant]
     Dosage: UNK
  5. LASIX [Concomitant]
     Indication: PULMONARY OEDEMA
     Dosage: UNK
  6. ACETYLSALICYLIC ACID [Concomitant]
     Dosage: UNK
  7. VITAMINS NOS [Concomitant]
     Dosage: UNK

REACTIONS (2)
  - ASTHENIA [None]
  - DYSPNOEA [None]
